FAERS Safety Report 9557405 (Version 1)
Quarter: 2013Q3

REPORT INFORMATION
  Report Type: Spontaneous
  Country: US (occurrence: None)
  Receive Date: 20130726
  Receipt Date: 20130726
  Transmission Date: 20140515
  Serious: Yes (Hospitalization)
  Sender: FDA-Public Use
  Company Number: UTC-020586

PATIENT
  Age: 56 Year
  Sex: Female
  Weight: 62.73 kg

DRUGS (1)
  1. REMODULIN [Suspect]
     Indication: PULMONARY HYPERTENSION
     Dosage: (0.022 UG/KG, 1 IN 1 MIN)
     Route: 058
     Dates: start: 20040601

REACTIONS (1)
  - Palpitations [None]
